FAERS Safety Report 23259169 (Version 1)
Quarter: 2023Q4

REPORT INFORMATION
  Report Type: Spontaneous
  Country: US (occurrence: US)
  Receive Date: 20231204
  Receipt Date: 20231204
  Transmission Date: 20240109
  Serious: No
  Sender: FDA-Public Use
  Company Number: US-Vifor (International) Inc.-VIT-2023-09310

PATIENT
  Age: 83 Year
  Sex: Female

DRUGS (1)
  1. VELTASSA [Suspect]
     Active Substance: PATIROMER
     Indication: Hyperkalaemia
     Dosage: DISSOLVED CONTENTS OF 1 PACKET INTO ONE-THIRD CUP OF WATER AND DRINK FULL AMOUNT ONCE DAILY
     Route: 048
     Dates: start: 20180515

REACTIONS (2)
  - Fatigue [Unknown]
  - Alopecia [Unknown]
